FAERS Safety Report 8853323 (Version 1)
Quarter: 2012Q4

REPORT INFORMATION
  Report Type: 
  Country: AU (occurrence: AU)
  Receive Date: 20121022
  Receipt Date: 20121022
  Transmission Date: 20130627
  Serious: Yes (Other)
  Sender: FDA-Public Use
  Company Number: AU-CELGENEUS-008-21660-12101067

PATIENT
  Sex: Male

DRUGS (1)
  1. ABRAXANE [Suspect]
     Indication: BREAST CANCER MALE
     Route: 041

REACTIONS (1)
  - Pericardial effusion [Unknown]
